FAERS Safety Report 7878989-8 (Version None)
Quarter: 2011Q4

REPORT INFORMATION
  Report Type: 
  Country: None (occurrence: None)
  Receive Date: 20111101
  Receipt Date: 20111019
  Transmission Date: 20120403
  Serious: Yes (Other)
  Sender: FDA-Public Use
  Company Number: PHEH2009US03631

PATIENT
  Sex: Male

DRUGS (1)
  1. AREDIA [Suspect]

REACTIONS (18)
  - ARTHRALGIA [None]
  - SQUAMOUS CELL CARCINOMA [None]
  - OSTEONECROSIS OF JAW [None]
  - FALL [None]
  - DISABILITY [None]
  - PAIN [None]
  - ACTINIC KERATOSIS [None]
  - ANHEDONIA [None]
  - JOINT SWELLING [None]
  - ANXIETY [None]
  - MULTIPLE MYELOMA [None]
  - INJURY [None]
  - TONGUE NEOPLASM MALIGNANT STAGE UNSPECIFIED [None]
  - SEBORRHOEIC KERATOSIS [None]
  - HYPERTENSION [None]
  - RENAL FAILURE [None]
  - ARRHYTHMIA [None]
  - SKIN CANCER [None]
